FAERS Safety Report 11938934 (Version 2)
Quarter: 2016Q1

REPORT INFORMATION
  Report Type: Spontaneous
  Country: US (occurrence: US)
  Receive Date: 20160122
  Receipt Date: 20160128
  Transmission Date: 20160526
  Serious: No
  Sender: FDA-Public Use
  Company Number: US-HORIZON-VIM-0011-2016

PATIENT
  Age: 56 Year
  Sex: Male

DRUGS (1)
  1. VIMOVO [Suspect]
     Active Substance: ESOMEPRAZOLE MAGNESIUM\NAPROXEN
     Indication: OSTEOARTHRITIS
     Dosage: 500/20 MG, TWICE DAILY
     Route: 048
     Dates: start: 2013, end: 2014

REACTIONS (1)
  - Therapy cessation [Unknown]
